FAERS Safety Report 9726035 (Version 1)
Quarter: 2013Q4

REPORT INFORMATION
  Report Type: Spontaneous
  Country: US (occurrence: None)
  Receive Date: 20131202
  Receipt Date: 20131202
  Transmission Date: 20140711
  Serious: Yes (Hospitalization)
  Sender: FDA-Public Use
  Company Number: None

PATIENT
  Age: 72 Year
  Sex: Male
  Weight: 82.4 kg

DRUGS (1)
  1. RUXOLITINIB [Suspect]
     Indication: MYELOFIBROSIS
     Route: 048
     Dates: start: 20120615, end: 20130805

REACTIONS (2)
  - Leukopenia [None]
  - Pyrexia [None]
